FAERS Safety Report 8493777-X (Version None)
Quarter: 2012Q3

REPORT INFORMATION
  Report Type: 
  Country: None (occurrence: None)
  Receive Date: 20120706
  Receipt Date: 20120702
  Transmission Date: 20120928
  Serious: Yes (Other)
  Sender: FDA-Public Use
  Company Number: DE-B.I. PHARMACEUTICALS,INC./RIDGEFIELD-2012-DE-01569DE

PATIENT
  Age: 57 Year
  Sex: Female

DRUGS (15)
  1. PROCALTIOL [Concomitant]
  2. DIPYRONE TAB [Concomitant]
  3. ZINK ORO TAT [Concomitant]
  4. FLUNIPRAZEPAM [Concomitant]
  5. MYDOCALM [Concomitant]
  6. FUROSEMIDE [Concomitant]
  7. LACTULADE [Concomitant]
  8. ASPIRIN [Concomitant]
  9. RENVELA [Concomitant]
  10. OMEPRAZOLE [Concomitant]
  11. EUTHYROX [Concomitant]
  12. DREISAVIT [Concomitant]
  13. PRAMIPEXOLE DIHYDROCHLORIDE [Suspect]
     Indication: RESTLESS LEGS SYNDROME
     Dosage: 0.36 MG
     Dates: start: 20080101
  14. PHENTANYL [Concomitant]
  15. CALCIUMACETAT NEFRO 500 [Concomitant]

REACTIONS (2)
  - ABNORMAL BEHAVIOUR [None]
  - SHOPLIFTING [None]
